FAERS Safety Report 13844981 (Version 1)
Quarter: 2017Q3

REPORT INFORMATION
  Report Type: Report from Study
  Country: US (occurrence: US)
  Receive Date: 20170808
  Receipt Date: 20170808
  Transmission Date: 20171127
  Serious: Yes (Other)
  Sender: FDA-Public Use
  Company Number: US-SA-2017SA143942

PATIENT
  Age: 64 Year

DRUGS (2)
  1. FLUDARABINE PHOSPHATE. [Suspect]
     Active Substance: FLUDARABINE PHOSPHATE
     Indication: DIFFUSE LARGE B-CELL LYMPHOMA
     Route: 041
  2. CYCLOPHOSPHAMIDE. [Suspect]
     Active Substance: CYCLOPHOSPHAMIDE
     Indication: DIFFUSE LARGE B-CELL LYMPHOMA
     Route: 041

REACTIONS (11)
  - Hypotension [Unknown]
  - Somnolence [Unknown]
  - Aphasia [Unknown]
  - Haemoglobin decreased [Unknown]
  - Agitation [Unknown]
  - Device related infection [Unknown]
  - Platelet count decreased [Unknown]
  - Cognitive disorder [Unknown]
  - Neutrophil count decreased [Unknown]
  - Lymphocyte count decreased [Unknown]
  - Febrile neutropenia [Unknown]
